FAERS Safety Report 25831747 (Version 1)
Quarter: 2025Q3

REPORT INFORMATION
  Report Type: Spontaneous
  Country: EU (occurrence: EU)
  Receive Date: 20250922
  Receipt Date: 20250922
  Transmission Date: 20251020
  Serious: Yes (Hospitalization)
  Sender: PFIZER
  Company Number: EU-ROCHE-10000378510

PATIENT
  Age: 66 Year
  Sex: Female
  Weight: 76 kg

DRUGS (10)
  1. CARBOPLATIN [Suspect]
     Active Substance: CARBOPLATIN
     Indication: Breast cancer female
     Route: 042
     Dates: start: 20250623
  2. CARBOPLATIN [Suspect]
     Active Substance: CARBOPLATIN
     Route: 042
     Dates: start: 20250804
  3. TIRAGOLUMAB [Suspect]
     Active Substance: TIRAGOLUMAB
     Indication: Breast cancer female
     Route: 042
     Dates: start: 20250623
  4. TIRAGOLUMAB [Suspect]
     Active Substance: TIRAGOLUMAB
     Route: 042
     Dates: start: 20250804
  5. ATEZOLIZUMAB [Suspect]
     Active Substance: ATEZOLIZUMAB
     Indication: Breast cancer female
     Route: 042
     Dates: start: 20250623
  6. ATEZOLIZUMAB [Suspect]
     Active Substance: ATEZOLIZUMAB
     Route: 042
     Dates: start: 20250804
  7. PACLITAXEL [Suspect]
     Active Substance: PACLITAXEL
     Indication: Breast cancer female
     Route: 042
     Dates: start: 20250623
  8. PACLITAXEL [Suspect]
     Active Substance: PACLITAXEL
     Route: 042
     Dates: start: 20250818
  9. BROMAZEPAM [Concomitant]
     Active Substance: BROMAZEPAM
     Route: 048
  10. SERTRALINE [Concomitant]
     Active Substance: SERTRALINE HYDROCHLORIDE
     Route: 048

REACTIONS (2)
  - Troponin increased [Unknown]
  - Off label use [Unknown]

NARRATIVE: CASE EVENT DATE: 20250623
